FAERS Safety Report 25528654 (Version 2)
Quarter: 2025Q3

REPORT INFORMATION
  Report Type: Spontaneous
  Country: EU (occurrence: EU)
  Receive Date: 20250708
  Receipt Date: 20250715
  Transmission Date: 20251020
  Serious: Yes (Other)
  Sender: MYLAN
  Company Number: EU-MYLANLABS-2025M1055365

PATIENT
  Age: 73 Year
  Sex: Male

DRUGS (48)
  1. XANAX [Suspect]
     Active Substance: ALPRAZOLAM
     Indication: Product used for unknown indication
  2. XANAX [Suspect]
     Active Substance: ALPRAZOLAM
     Route: 065
  3. XANAX [Suspect]
     Active Substance: ALPRAZOLAM
     Route: 065
  4. XANAX [Suspect]
     Active Substance: ALPRAZOLAM
  5. QUETIAPINE [Suspect]
     Active Substance: QUETIAPINE
     Indication: Bipolar disorder
     Dosage: 150 MILLIGRAM, PM (ONE TABLET EVERY NIGHT FOR ABOUT 4 YEARS)
  6. QUETIAPINE [Suspect]
     Active Substance: QUETIAPINE
     Dosage: 150 MILLIGRAM, PM (ONE TABLET EVERY NIGHT FOR ABOUT 4 YEARS)
     Route: 065
  7. QUETIAPINE [Suspect]
     Active Substance: QUETIAPINE
     Dosage: 150 MILLIGRAM, PM (ONE TABLET EVERY NIGHT FOR ABOUT 4 YEARS)
     Route: 065
  8. QUETIAPINE [Suspect]
     Active Substance: QUETIAPINE
     Dosage: 150 MILLIGRAM, PM (ONE TABLET EVERY NIGHT FOR ABOUT 4 YEARS)
  9. VIAGRA [Suspect]
     Active Substance: SILDENAFIL CITRATE
     Indication: Product used for unknown indication
  10. VIAGRA [Suspect]
     Active Substance: SILDENAFIL CITRATE
     Route: 065
  11. VIAGRA [Suspect]
     Active Substance: SILDENAFIL CITRATE
     Route: 065
  12. VIAGRA [Suspect]
     Active Substance: SILDENAFIL CITRATE
  13. MIRTAZAPINE [Suspect]
     Active Substance: MIRTAZAPINE
     Indication: Bipolar disorder
     Dosage: 30 MILLIGRAM, PM (ONE TABLET EVERY NIGHT)
  14. MIRTAZAPINE [Suspect]
     Active Substance: MIRTAZAPINE
     Dosage: 30 MILLIGRAM, PM (ONE TABLET EVERY NIGHT)
     Route: 065
  15. MIRTAZAPINE [Suspect]
     Active Substance: MIRTAZAPINE
     Dosage: 30 MILLIGRAM, PM (ONE TABLET EVERY NIGHT)
     Route: 065
  16. MIRTAZAPINE [Suspect]
     Active Substance: MIRTAZAPINE
     Dosage: 30 MILLIGRAM, PM (ONE TABLET EVERY NIGHT)
  17. LEVOTHYROXINE [Concomitant]
     Active Substance: LEVOTHYROXINE
     Indication: Product used for unknown indication
     Dosage: 1 DOSAGE FORM, AM (1 IN THE MORNING)
  18. LEVOTHYROXINE [Concomitant]
     Active Substance: LEVOTHYROXINE
     Dosage: 1 DOSAGE FORM, AM (1 IN THE MORNING)
     Route: 065
  19. LEVOTHYROXINE [Concomitant]
     Active Substance: LEVOTHYROXINE
     Dosage: 1 DOSAGE FORM, AM (1 IN THE MORNING)
     Route: 065
  20. LEVOTHYROXINE [Concomitant]
     Active Substance: LEVOTHYROXINE
     Dosage: 1 DOSAGE FORM, AM (1 IN THE MORNING)
  21. OLMESARTAN MEDOXOMIL [Concomitant]
     Active Substance: OLMESARTAN MEDOXOMIL
     Dosage: 40 MILLIGRAM, QD
  22. OLMESARTAN MEDOXOMIL [Concomitant]
     Active Substance: OLMESARTAN MEDOXOMIL
     Dosage: 40 MILLIGRAM, QD
     Route: 048
  23. OLMESARTAN MEDOXOMIL [Concomitant]
     Active Substance: OLMESARTAN MEDOXOMIL
     Dosage: 40 MILLIGRAM, QD
     Route: 048
  24. OLMESARTAN MEDOXOMIL [Concomitant]
     Active Substance: OLMESARTAN MEDOXOMIL
     Dosage: 40 MILLIGRAM, QD
  25. NORVASC [Concomitant]
     Active Substance: AMLODIPINE BESYLATE
     Dosage: 10 MILLIGRAM, QD
  26. NORVASC [Concomitant]
     Active Substance: AMLODIPINE BESYLATE
     Dosage: 10 MILLIGRAM, QD
     Route: 065
  27. NORVASC [Concomitant]
     Active Substance: AMLODIPINE BESYLATE
     Dosage: 10 MILLIGRAM, QD
     Route: 065
  28. NORVASC [Concomitant]
     Active Substance: AMLODIPINE BESYLATE
     Dosage: 10 MILLIGRAM, QD
  29. SELENIUM [Concomitant]
     Active Substance: SELENIUM
     Indication: Autoimmune thyroiditis
  30. SELENIUM [Concomitant]
     Active Substance: SELENIUM
     Route: 065
  31. SELENIUM [Concomitant]
     Active Substance: SELENIUM
     Route: 065
  32. SELENIUM [Concomitant]
     Active Substance: SELENIUM
  33. VITAMIN B3 [Concomitant]
     Active Substance: NIACIN
  34. VITAMIN B3 [Concomitant]
     Active Substance: NIACIN
     Route: 065
  35. VITAMIN B3 [Concomitant]
     Active Substance: NIACIN
     Route: 065
  36. VITAMIN B3 [Concomitant]
     Active Substance: NIACIN
  37. VITAMIN B12 [Concomitant]
     Active Substance: CYANOCOBALAMIN
  38. VITAMIN B12 [Concomitant]
     Active Substance: CYANOCOBALAMIN
     Route: 065
  39. VITAMIN B12 [Concomitant]
     Active Substance: CYANOCOBALAMIN
     Route: 065
  40. VITAMIN B12 [Concomitant]
     Active Substance: CYANOCOBALAMIN
  41. MAGNESIUM [Concomitant]
     Active Substance: MAGNESIUM
     Dosage: 1 DOSAGE FORM, QD (1 EVERY NIGHT)
  42. MAGNESIUM [Concomitant]
     Active Substance: MAGNESIUM
     Dosage: 1 DOSAGE FORM, QD (1 EVERY NIGHT)
     Route: 065
  43. MAGNESIUM [Concomitant]
     Active Substance: MAGNESIUM
     Dosage: 1 DOSAGE FORM, QD (1 EVERY NIGHT)
     Route: 065
  44. MAGNESIUM [Concomitant]
     Active Substance: MAGNESIUM
     Dosage: 1 DOSAGE FORM, QD (1 EVERY NIGHT)
  45. OMEPRAZOLE [Concomitant]
     Active Substance: OMEPRAZOLE
  46. OMEPRAZOLE [Concomitant]
     Active Substance: OMEPRAZOLE
     Route: 065
  47. OMEPRAZOLE [Concomitant]
     Active Substance: OMEPRAZOLE
     Route: 065
  48. OMEPRAZOLE [Concomitant]
     Active Substance: OMEPRAZOLE

REACTIONS (4)
  - Syncope [Unknown]
  - Somnolence [Unknown]
  - Fatigue [Unknown]
  - Nausea [Unknown]

NARRATIVE: CASE EVENT DATE: 20250622
